FAERS Safety Report 8249220-9 (Version None)
Quarter: 2012Q1

REPORT INFORMATION
  Report Type: 
  Country: None (occurrence: None)
  Receive Date: 20120327
  Receipt Date: 20120312
  Transmission Date: 20120608
  Serious: Yes (Other)
  Sender: FDA-Public Use
  Company Number: 2012-028594

PATIENT
  Age: 81 Year
  Sex: Male
  Weight: 79.4 kg

DRUGS (11)
  1. RIVAROXABAN (RIVAROXABAN) FILM-COATED TABLET [Suspect]
     Indication: CEREBROVASCULAR ACCIDENT PROPHYLAXIS
     Dosage: 20 MG, HS, ORAL
     Route: 048
     Dates: start: 20120221
  2. RIVAROXABAN (RIVAROXABAN) FILM-COATED TABLET [Suspect]
     Indication: HEART RATE IRREGULAR
     Dosage: 20 MG, HS, ORAL
     Route: 048
     Dates: start: 20120221
  3. ASPIRIN [Suspect]
     Dosage: 81 MG, HS, ORAL
     Route: 048
     Dates: start: 20020101
  4. CARVEDILOL [Concomitant]
  5. OXYBUTYNIN [Concomitant]
  6. NAMENDA [Concomitant]
  7. FISH OIL (FISH OIL) [Concomitant]
  8. VITAMIN B (VITAMIN B) [Concomitant]
  9. LIPITOR [Concomitant]
  10. GLUCOSAMINE/WJSM (GLUCOSAMINE W/METHYLSULFONYLMETHANE) [Concomitant]
  11. DRUGS USED IN BENIGN PROSTATIC HYPERTROPHY (DRUGS USED IN BENIGN PROST [Concomitant]

REACTIONS (1)
  - HAEMOPTYSIS [None]
